FAERS Safety Report 19332471 (Version 1)
Quarter: 2021Q2

REPORT INFORMATION
  Report Type: Spontaneous
  Country: DE (occurrence: DE)
  Receive Date: 20210529
  Receipt Date: 20210529
  Transmission Date: 20210717
  Serious: Yes (Death, Hospitalization)
  Sender: FDA-Public Use
  Company Number: DE-ACCORD-226479

PATIENT
  Age: 76 Year
  Sex: Male

DRUGS (10)
  1. PHENPROCOUMON [Suspect]
     Active Substance: PHENPROCOUMON
     Indication: PRODUCT USED FOR UNKNOWN INDICATION
     Dosage: 3 MG, ACCORDING TO QUICK
  2. MAGNESIUM [Concomitant]
     Active Substance: MAGNESIUM
     Dosage: 1?0?1?0
  3. IPRATROPIUM BROMIDE/SALBUTAMOL [Concomitant]
     Active Substance: ALBUTEROL\IPRATROPIUM BROMIDE
     Dosage: BEDARF
     Route: 055
  4. TARDYFERON?FOL [Concomitant]
     Dosage: 1?0?0?0
  5. PANTOPRAZOLE [Concomitant]
     Active Substance: PANTOPRAZOLE
     Dosage: 40 MG, 1?0?1?0
  6. METOCLOPRAMIDE/METOCLOPRAMIDE GLYCYRRHETINATE/METOCLOPRAMIDE HYDROCHLORIDE [Concomitant]
     Dosage: 30 MG, 1?0?0?0
  7. SIMVASTATIN. [Concomitant]
     Active Substance: SIMVASTATIN
     Dosage: 40 MG, 0?0?1?0
  8. LEVOTHYROXINE. [Concomitant]
     Active Substance: LEVOTHYROXINE
     Dosage: 150 UG, 1?0?0?0
  9. METAMIZOLE SODIUM [Concomitant]
     Active Substance: METAMIZOLE SODIUM
     Dosage: BEDARF, TROPFEN
  10. ESCITALOPRAM [Suspect]
     Active Substance: ESCITALOPRAM OXALATE
     Indication: PRODUCT USED FOR UNKNOWN INDICATION
     Dosage: 10 MG, 1?0?0?0

REACTIONS (5)
  - Overdose [Unknown]
  - Product prescribing error [Unknown]
  - Haematochezia [Unknown]
  - Abdominal pain [Unknown]
  - Medication error [Unknown]
